FAERS Safety Report 7889781-2 (Version None)
Quarter: 2011Q4

REPORT INFORMATION
  Report Type: 
  Country: None (occurrence: None)
  Receive Date: 20111103
  Receipt Date: 20111021
  Transmission Date: 20120403
  Serious: Yes (Hospitalization)
  Sender: FDA-Public Use
  Company Number: US-GLAXOSMITHKLINE-A0799463A

PATIENT
  Sex: Male

DRUGS (3)
  1. AVANDIA [Suspect]
     Indication: DIABETES MELLITUS
     Dosage: 2MG PER DAY
     Route: 065
     Dates: start: 20040201, end: 20070701
  2. CARDIZEM [Concomitant]
  3. GLUCOTROL [Concomitant]

REACTIONS (1)
  - PALPITATIONS [None]
